FAERS Safety Report 21869660 (Version 1)
Quarter: 2023Q1

REPORT INFORMATION
  Report Type: Report from Study
  Country: US (occurrence: US)
  Receive Date: 20230117
  Receipt Date: 20230117
  Transmission Date: 20230417
  Serious: No
  Sender: FDA-Public Use
  Company Number: US-ABBVIE-4272272

PATIENT
  Sex: Female

DRUGS (2)
  1. VENCLEXTA [Suspect]
     Active Substance: VENETOCLAX
     Indication: Lymphoid leukaemia (in remission)
     Dosage: TAKE 2 TABLETS BY MOUTH ONCE DAILY
     Route: 048
  2. VENCLEXTA [Suspect]
     Active Substance: VENETOCLAX
     Indication: Lymphoid leukaemia (in remission)
     Route: 048

REACTIONS (2)
  - Purpura [Recovering/Resolving]
  - Rash pruritic [Recovering/Resolving]
